FAERS Safety Report 7811857-6 (Version None)
Quarter: 2011Q4

REPORT INFORMATION
  Report Type: 
  Country: None (occurrence: None)
  Receive Date: 20111013
  Receipt Date: 20111011
  Transmission Date: 20120403
  Serious: Yes (Disabling, Other)
  Sender: FDA-Public Use
  Company Number: US-PURDUE-USA-2011-0075968

PATIENT
  Sex: Male

DRUGS (1)
  1. TRAMADOL HCL [Suspect]
     Indication: PRODUCT USED FOR UNKNOWN INDICATION
     Dosage: 50 MG, UNK
     Route: 048

REACTIONS (12)
  - DISABILITY [None]
  - NAUSEA [None]
  - VOMITING [None]
  - BLOOD TEST ABNORMAL [None]
  - DEPRESSION [None]
  - ANXIETY [None]
  - DRUG DISPENSING ERROR [None]
  - UNEVALUABLE EVENT [None]
  - INTERNAL INJURY [None]
  - INSOMNIA [None]
  - PAIN [None]
  - MOOD ALTERED [None]
